FAERS Safety Report 6530125-6 (Version None)
Quarter: 2010Q1

REPORT INFORMATION
  Report Type: 
  Country: None (occurrence: None)
  Receive Date: 20100107
  Receipt Date: 20100104
  Transmission Date: 20100710
  Serious: Yes (Death, Hospitalization)
  Sender: FDA-Public Use
  Company Number: US-AMGEN-US380542

PATIENT
  Age: 61 Year
  Sex: Female
  Weight: 86 kg

DRUGS (17)
  1. PANITUMUMAB [Suspect]
     Indication: PANCREATIC CARCINOMA
     Route: 042
     Dates: start: 20090818, end: 20091124
  2. GEMCITABINE [Suspect]
     Route: 042
     Dates: start: 20090818, end: 20091124
  3. TARCEVA [Suspect]
     Route: 048
     Dates: start: 20090818, end: 20091207
  4. ALBUTEROL [Concomitant]
     Route: 055
  5. IPRATROPIUM [Concomitant]
     Route: 055
  6. ZOFRAN [Concomitant]
     Route: 048
  7. FENTANYL-100 [Concomitant]
     Route: 062
  8. MAGNESIUM OXIDE [Concomitant]
     Route: 048
  9. NIFEREX [Concomitant]
     Route: 065
  10. COMPAZINE [Concomitant]
     Route: 065
  11. LYRICA [Concomitant]
     Route: 065
  12. CYMBALTA [Concomitant]
     Route: 065
  13. LOTREL [Concomitant]
     Route: 048
  14. ALLEGRA [Concomitant]
     Route: 065
  15. PREVACID [Concomitant]
     Route: 065
  16. LASIX [Concomitant]
     Route: 065
  17. K-DUR [Concomitant]
     Route: 048

REACTIONS (3)
  - DEATH [None]
  - DYSPNOEA [None]
  - HYPOXIA [None]
